FAERS Safety Report 25204540 (Version 1)
Quarter: 2025Q2

REPORT INFORMATION
  Report Type: Spontaneous
  Country: US (occurrence: US)
  Receive Date: 20250416
  Receipt Date: 20250416
  Transmission Date: 20250717
  Serious: Yes (Hospitalization)
  Sender: AMERICAN REGENT
  Company Number: US-AMERICAN REGENT INC-2025001527

PATIENT
  Age: 38 Year
  Sex: Male

DRUGS (1)
  1. TESTOSTERONE CYPIONATE [Suspect]
     Active Substance: TESTOSTERONE CYPIONATE
     Indication: Hypogonadism
     Route: 030

REACTIONS (6)
  - Dilated cardiomyopathy [Unknown]
  - Coronary artery occlusion [Unknown]
  - Pelvic venous thrombosis [Unknown]
  - Cerebral infarction [Unknown]
  - Acute myocardial infarction [Unknown]
  - Cardiac ventricular thrombosis [Unknown]
